FAERS Safety Report 7360993-X (Version None)
Quarter: 2011Q1

REPORT INFORMATION
  Report Type: 
  Country: None (occurrence: None)
  Receive Date: 20110315
  Receipt Date: 20110315
  Transmission Date: 20110831
  Serious: Yes (Disabling, Other)
  Sender: FDA-Public Use
  Company Number: None

PATIENT
  Age: 29 Year
  Sex: Male
  Weight: 63.5036 kg

DRUGS (1)
  1. KWELL [Suspect]
     Indication: ACARODERMATITIS
     Dosage: AS PRESCRIBED ON LABEL ONE TIME TOP
     Route: 061
     Dates: start: 19890115, end: 19890115

REACTIONS (8)
  - FEELING ABNORMAL [None]
  - CANDIDIASIS [None]
  - PAIN [None]
  - FATIGUE [None]
  - DEPRESSION [None]
  - PRODUCT QUALITY ISSUE [None]
  - DISTURBANCE IN ATTENTION [None]
  - DECREASED APPETITE [None]
